FAERS Safety Report 8581524-2 (Version None)
Quarter: 2012Q3

REPORT INFORMATION
  Report Type: 
  Country: None (occurrence: None)
  Receive Date: 20120809
  Receipt Date: 20120801
  Transmission Date: 20120928
  Serious: Yes (Other)
  Sender: FDA-Public Use
  Company Number: NL-AMGEN-NLDSP2012049381

PATIENT
  Age: 51 Year
  Sex: Female

DRUGS (2)
  1. ENBREL [Suspect]
     Indication: RHEUMATOID ARTHRITIS
     Dosage: 50 MG, QWK
     Dates: start: 20100101
  2. ENBREL [Suspect]
     Dosage: 50 MG, Q2WK
     Dates: start: 20120101

REACTIONS (2)
  - ARTHRITIS [None]
  - DRUG INEFFECTIVE [None]
